FAERS Safety Report 7766839-X (Version None)
Quarter: 2011Q3

REPORT INFORMATION
  Report Type: 
  Country: None (occurrence: None)
  Receive Date: 20110922
  Receipt Date: 20100728
  Transmission Date: 20111222
  Serious: No
  Sender: FDA-Public Use
  Company Number: US-ASTRAZENECA-2010SE35342

PATIENT
  Sex: Female

DRUGS (8)
  1. SEROQUEL [Suspect]
     Route: 048
     Dates: start: 20090901
  2. SEROQUEL [Suspect]
     Indication: DEPRESSION
     Route: 048
  3. SEROQUEL [Suspect]
     Route: 048
     Dates: start: 20090901
  4. SEROQUEL [Suspect]
     Route: 048
  5. SEROQUEL [Suspect]
     Indication: HALLUCINATION
     Route: 048
  6. SEROQUEL [Suspect]
     Route: 048
  7. SEROQUEL [Suspect]
     Route: 048
     Dates: start: 20090701, end: 20100101
  8. SEROQUEL [Suspect]
     Route: 048
     Dates: start: 20090701, end: 20100101

REACTIONS (6)
  - HALLUCINATION [None]
  - NIGHTMARE [None]
  - DRUG DOSE OMISSION [None]
  - SEDATION [None]
  - WEIGHT INCREASED [None]
  - DEPRESSION [None]
